FAERS Safety Report 5246065-9 (Version None)
Quarter: 2007Q1

REPORT INFORMATION
  Report Type: 
  Country: None (occurrence: None)
  Receive Date: 20061201
  Receipt Date: 20060808
  Transmission Date: 20070707
  Serious: No
  Sender: FDA-Public Use
  Company Number: 2006PV019103

PATIENT
  Age: 64 Year
  Sex: Male
  Weight: 122.4712 kg

DRUGS (6)
  1. BYETTA [Suspect]
     Dosage: 10 MCG;BID;SC, 5 MCG;BID;SC
     Route: 058
     Dates: start: 20060301, end: 20060401
  2. BYETTA [Suspect]
     Dosage: 10 MCG;BID;SC, 5 MCG;BID;SC
     Route: 058
     Dates: start: 20060401
  3. ACTOS [Concomitant]
  4. METFORMIN HCL [Concomitant]
  5. GLYBURIDE [Concomitant]
  6. LANTUS [Concomitant]

REACTIONS (4)
  - NAUSEA [None]
  - THERAPEUTIC RESPONSE UNEXPECTED [None]
  - VOMITING [None]
  - WEIGHT DECREASED [None]
